FAERS Safety Report 24622421 (Version 1)
Quarter: 2024Q4

REPORT INFORMATION
  Report Type: Spontaneous
  Country: JP (occurrence: JP)
  Receive Date: 20241115
  Receipt Date: 20241115
  Transmission Date: 20250115
  Serious: Yes (Other)
  Sender: MSN LABORATORIES PRIVATE LIMITED
  Company Number: JP-MSNLABS-2024MSNLIT02451

PATIENT

DRUGS (4)
  1. SIROLIMUS [Suspect]
     Active Substance: SIROLIMUS
     Indication: Lymphangioleiomyomatosis
     Dosage: DAILY DOSE OF 1 MG ORAL SIROLIMUS
     Route: 048
  2. SIROLIMUS [Suspect]
     Active Substance: SIROLIMUS
     Dosage: DOSE WAS INCREASED TO 2 MG AFTER 167 DAYS
     Route: 048
  3. SIROLIMUS [Suspect]
     Active Substance: SIROLIMUS
     Dosage: REDUCED THE SIROLIMUS DOSE TO 1 MG DAILY
     Route: 048
  4. SIROLIMUS [Suspect]
     Active Substance: SIROLIMUS
     Dosage: RESUMED TAKING SIROLIMUS AT A LOW DOSE (1 MG EVERY ALTERNATE DAY)
     Route: 048

REACTIONS (2)
  - Lung disorder [Recovering/Resolving]
  - Mycobacterium abscessus infection [Recovering/Resolving]
